FAERS Safety Report 4305630-3 (Version None)
Quarter: 2004Q1

REPORT INFORMATION
  Report Type: 
  Country: None (occurrence: None)
  Receive Date: 20040226
  Receipt Date: 20031216
  Transmission Date: 20041129
  Serious: No
  Sender: FDA-Public Use
  Company Number: US-BRISTOL-MYERS SQUIBB COMPANY-12460333

PATIENT
  Age: 44 Year
  Sex: Female
  Weight: 100 kg

DRUGS (5)
  1. ABILIFY [Suspect]
     Indication: DEREALISATION
     Dosage: 15 MG/DAY BEGINNING ON 14-DEC-2003
     Route: 048
     Dates: start: 20031212
  2. ALLEGRA [Concomitant]
  3. ALLEGRA-D [Concomitant]
  4. KLONOPIN [Concomitant]
  5. XANAX [Concomitant]

REACTIONS (2)
  - INSOMNIA [None]
  - RESTLESSNESS [None]
